FAERS Safety Report 4377689-9 (Version None)
Quarter: 2004Q2

REPORT INFORMATION
  Report Type: 
  Country: None (occurrence: None)
  Receive Date: 20040602
  Receipt Date: 20031001
  Transmission Date: 20050107
  Serious: Yes (Other)
  Sender: FDA-Public Use
  Company Number: NSADSS2003019452

PATIENT
  Age: 44 Year
  Sex: Female

DRUGS (8)
  1. PROPULSID [Suspect]
     Indication: GASTROOESOPHAGEAL REFLUX DISEASE
     Dosage: SEE IMAGE
     Dates: start: 19961227
  2. PROPULSID [Suspect]
     Indication: GASTROOESOPHAGEAL REFLUX DISEASE
     Dosage: SEE IMAGE
     Dates: start: 19980908
  3. PROPULSID [Suspect]
     Indication: GASTROOESOPHAGEAL REFLUX DISEASE
     Dosage: SEE IMAGE
     Dates: start: 20000202
  4. CELEBREX [Concomitant]
  5. PREVACID [Concomitant]
  6. DECADRON [Concomitant]
  7. Z-PAK (ANTIBIOTICS) [Concomitant]
  8. PROVENTIL [Concomitant]

REACTIONS (8)
  - ARRHYTHMIA [None]
  - ASTHMA [None]
  - BRONCHITIS [None]
  - CARDIAC DISORDER [None]
  - CHEST WALL PAIN [None]
  - ELECTROCARDIOGRAM QT PROLONGED [None]
  - PNEUMONIA [None]
  - SINUSITIS [None]
